FAERS Safety Report 5824276-9 (Version None)
Quarter: 2008Q3

REPORT INFORMATION
  Report Type: 
  Country: None (occurrence: None)
  Receive Date: 20080721
  Receipt Date: 20080709
  Transmission Date: 20090109
  Serious: Yes (Other)
  Sender: FDA-Public Use
  Company Number: 100#03#2008-03602

PATIENT
  Sex: Female

DRUGS (1)
  1. DOXYCYCLINE [Suspect]
     Indication: MALARIA PROPHYLAXIS

REACTIONS (3)
  - DRUG INEFFECTIVE [None]
  - PHOTOSENSITIVITY REACTION [None]
  - PLASMODIUM FALCIPARUM INFECTION [None]
